FAERS Safety Report 23135366 (Version 1)
Quarter: 2023Q4

REPORT INFORMATION
  Report Type: Report from Study
  Country: JP (occurrence: JP)
  Receive Date: 20231101
  Receipt Date: 20231101
  Transmission Date: 20240110
  Serious: Yes (Hospitalization)
  Sender: FDA-Public Use
  Company Number: JP-Eisai Medical Research-EC-2021-089648

PATIENT
  Age: 58 Year
  Sex: Male
  Weight: 90 kg

DRUGS (16)
  1. LENVATINIB [Suspect]
     Active Substance: LENVATINIB
     Indication: Hepatocellular carcinoma
     Dosage: 12 MG (BW MORE THAN OR EQUAL TO 60 KG) OR 8 MG FOR BW LESS THAN 60 KG
     Route: 048
     Dates: start: 20200806, end: 20210309
  2. LENVATINIB [Suspect]
     Active Substance: LENVATINIB
     Dosage: 12 MG (BW MORE THAN OR EQUAL TO 60 KG) OR 8 MG FOR BW LESS THAN 60 KG
     Route: 048
     Dates: start: 20210330, end: 20210423
  3. PEMBROLIZUMAB [Suspect]
     Active Substance: PEMBROLIZUMAB
     Indication: Hepatocellular carcinoma
     Dosage: ON DAY 1
     Route: 042
     Dates: start: 20200806, end: 20210216
  4. PEMBROLIZUMAB [Suspect]
     Active Substance: PEMBROLIZUMAB
     Dosage: ON DAY 1
     Route: 042
     Dates: start: 20210330, end: 20210330
  5. EPIRUBICIN [Suspect]
     Active Substance: EPIRUBICIN
     Indication: Hepatocellular carcinoma
     Dosage: INITIAL DOSE: 35 MILLIGRAM, FLUCTUATED DOSAGE. FREQUENCY UNKNOWN
     Route: 013
     Dates: start: 20210828, end: 20211104
  6. ETHIODIZED OIL [Suspect]
     Active Substance: ETHIODIZED OIL
     Indication: Hepatocellular carcinoma
     Dosage: DOSE AND FREQUENCY UNKNOWN
     Route: 013
     Dates: start: 20210825, end: 20211104
  7. AMLODIPINE [Concomitant]
     Active Substance: AMLODIPINE BESYLATE
     Dates: start: 200001, end: 20210304
  8. IRBESARTAN [Concomitant]
     Active Substance: IRBESARTAN
     Dates: start: 200001
  9. SPIRONOLACTONE [Concomitant]
     Active Substance: SPIRONOLACTONE
     Dates: start: 200001
  10. ASPIRIN [Concomitant]
     Active Substance: ASPIRIN
     Dates: start: 200301
  11. NEXIUM [Concomitant]
     Active Substance: ESOMEPRAZOLE MAGNESIUM
     Dates: start: 20190314
  12. MIYA-BM [Concomitant]
     Active Substance: CLOSTRIDIUM BUTYRICUM SPORES STRAIN M-55
     Dates: start: 20190405
  13. VONOPRAZAN FUMARATE [Concomitant]
     Active Substance: VONOPRAZAN FUMARATE
     Dates: start: 20201228
  14. METRONIDAZOLE [Concomitant]
     Active Substance: METRONIDAZOLE
     Dates: start: 20210309, end: 20210309
  15. CEFEPIME HYDROCHLORIDE [Concomitant]
     Active Substance: CEFEPIME HYDROCHLORIDE
     Dates: start: 20210309, end: 20210309
  16. LEVOFLOXACIN [Concomitant]
     Active Substance: LEVOFLOXACIN
     Dates: start: 20210318, end: 20210328

REACTIONS (2)
  - Cholangitis [Recovered/Resolved]
  - Adrenal insufficiency [Recovered/Resolved with Sequelae]

NARRATIVE: CASE EVENT DATE: 20210309
